FAERS Safety Report 22886788 (Version 3)
Quarter: 2023Q4

REPORT INFORMATION
  Report Type: Report from Study
  Country: DE (occurrence: DE)
  Receive Date: 20230831
  Receipt Date: 20231120
  Transmission Date: 20240109
  Serious: No
  Sender: FDA-Public Use
  Company Number: DE-MYLANLABS-2023M1056616

PATIENT
  Sex: Female

DRUGS (5)
  1. METHOTREXATE [Suspect]
     Active Substance: METHOTREXATE
     Indication: Product used for unknown indication
     Dosage: UNK
     Route: 065
     Dates: start: 20220919
  2. METHOTREXATE [Suspect]
     Active Substance: METHOTREXATE
     Indication: Product used for unknown indication
     Route: 065
     Dates: start: 20220505
  3. METHOTREXATE [Suspect]
     Active Substance: METHOTREXATE
     Indication: Product used for unknown indication
     Route: 065
     Dates: start: 20230328
  4. Roactemra [TOCILIZUMAB] [Concomitant]
     Indication: Product used for unknown indication
     Route: 065
     Dates: start: 202211, end: 202211
  5. Orencia [ABATACEPT] [Concomitant]
     Indication: Product used for unknown indication
     Route: 065
     Dates: start: 202104, end: 202107

REACTIONS (3)
  - Adjustment disorder [Unknown]
  - Headache [Not Recovered/Not Resolved]
  - Dyspnoea exertional [Unknown]

NARRATIVE: CASE EVENT DATE: 20220513
